FAERS Safety Report 9402430 (Version 1)
Quarter: 2013Q3

REPORT INFORMATION
  Report Type: Spontaneous
  Country: US (occurrence: US)
  Receive Date: 20130716
  Receipt Date: 20130716
  Transmission Date: 20140515
  Serious: Yes (Other)
  Sender: FDA-Public Use
  Company Number: US-PFIZER INC-2013205723

PATIENT
  Age: 60 Year
  Sex: Female
  Weight: 135 kg

DRUGS (4)
  1. LYRICA [Suspect]
     Dosage: 50 MG, 1X/DAY
     Route: 048
     Dates: start: 20130709
  2. LOPRESSOR [Concomitant]
     Dosage: 100 MG, 2X/DAY
  3. XANAX [Concomitant]
     Dosage: 1 MG, 3X/DAY
  4. ULTRAM [Concomitant]
     Indication: PAIN
     Dosage: 20 MG, 2X/DAY

REACTIONS (2)
  - Hypoacusis [Unknown]
  - Hearing impaired [Unknown]
